FAERS Safety Report 12349355 (Version 1)
Quarter: 2016Q2

REPORT INFORMATION
  Report Type: Spontaneous
  Country: FR (occurrence: FR)
  Receive Date: 20160509
  Receipt Date: 20160509
  Transmission Date: 20160815
  Serious: Yes (Hospitalization, Other)
  Sender: FDA-Public Use
  Company Number: FR-BRISTOL-MYERS SQUIBB COMPANY-BMS-2016-035565

PATIENT
  Age: 65 Year
  Sex: Male

DRUGS (8)
  1. ATORVASTATINE TEVA [Suspect]
     Active Substance: ATORVASTATIN
     Indication: HYPERCHOLESTEROLAEMIA
  2. FLUDEX                             /00340101/ [Suspect]
     Active Substance: INDAPAMIDE
     Indication: HYPERTENSION
     Route: 065
  3. CLOPIDROGEL SANDOZ [Concomitant]
     Indication: PRODUCT USED FOR UNKNOWN INDICATION
     Route: 065
  4. TAHOR [Suspect]
     Active Substance: ATORVASTATIN CALCIUM
     Indication: HYPERCHOLESTEROLAEMIA
  5. COVERSYL                           /00790702/ [Suspect]
     Active Substance: PERINDOPRIL
     Indication: HYPERTENSION
     Dosage: 10 MG, QD
     Route: 065
  6. METFORMIN HYDROCHLORIDE. [Suspect]
     Active Substance: METFORMIN HYDROCHLORIDE
     Indication: TYPE 2 DIABETES MELLITUS
     Dosage: 150 MG, BID
     Route: 065
  7. TAHOR [Suspect]
     Active Substance: ATORVASTATIN CALCIUM
     Indication: TYPE 2 DIABETES MELLITUS
     Dosage: 40 MG, QD
     Route: 065
  8. ATORVASTATINE TEVA [Suspect]
     Active Substance: ATORVASTATIN
     Indication: TYPE 2 DIABETES MELLITUS
     Route: 065

REACTIONS (11)
  - Intestinal obstruction [Recovered/Resolved]
  - Hepatic cancer [Unknown]
  - Lung neoplasm malignant [Unknown]
  - Hypotension [Unknown]
  - Vomiting [Unknown]
  - Colon cancer [Recovered/Resolved]
  - Pain [Recovered/Resolved]
  - Blood cholesterol increased [Recovered/Resolved]
  - Syncope [Unknown]
  - Surgery [Unknown]
  - Lipids increased [Recovered/Resolved]

NARRATIVE: CASE EVENT DATE: 20120606
